FAERS Safety Report 23743685 (Version 2)
Quarter: 2024Q3

REPORT INFORMATION
  Report Type: Spontaneous
  Country: US (occurrence: US)
  Receive Date: 20240415
  Receipt Date: 20240715
  Transmission Date: 20241016
  Serious: Yes (Death, Hospitalization, Disabling, Other)
  Sender: CHATTEM
  Company Number: US-OPELLA-2024OHG012753

PATIENT
  Age: 58 Year
  Sex: Female

DRUGS (1)
  1. TALC [Suspect]
     Active Substance: TALC
     Indication: Product used for unknown indication
     Route: 065

REACTIONS (11)
  - Sarcomatoid mesothelioma [Fatal]
  - Asbestosis [Unknown]
  - Lung neoplasm malignant [Unknown]
  - Injury [Unknown]
  - Pain [Unknown]
  - Disability [Unknown]
  - Anxiety [Unknown]
  - Quality of life decreased [Unknown]
  - Pleural effusion [Unknown]
  - Dyspnoea [Unknown]
  - Hypoxia [Unknown]

NARRATIVE: CASE EVENT DATE: 20230413
